FAERS Safety Report 12387452 (Version 2)
Quarter: 2016Q2

REPORT INFORMATION
  Report Type: Spontaneous
  Country: US (occurrence: US)
  Receive Date: 20160519
  Receipt Date: 20160617
  Transmission Date: 20160815
  Serious: Yes (Other)
  Sender: FDA-Public Use
  Company Number: US-AMGEN-USASP2016063191

PATIENT
  Age: 65 Year
  Sex: Male
  Weight: 107.3 kg

DRUGS (1)
  1. REPATHA [Suspect]
     Active Substance: EVOLOCUMAB
     Indication: PRODUCT USED FOR UNKNOWN INDICATION
     Dosage: 140 MG, Q2WK
     Route: 030
     Dates: start: 2016

REACTIONS (5)
  - Laryngeal oedema [Unknown]
  - Lymphadenopathy [Not Recovered/Not Resolved]
  - Pharyngeal oedema [Unknown]
  - Dysphagia [Unknown]
  - Gait disturbance [Unknown]

NARRATIVE: CASE EVENT DATE: 20160504
